FAERS Safety Report 5627173-7 (Version None)
Quarter: 2008Q1

REPORT INFORMATION
  Report Type: 
  Country: None (occurrence: None)
  Receive Date: 20080212
  Receipt Date: 20080212
  Transmission Date: 20080703
  Serious: Yes (Hospitalization)
  Sender: FDA-Public Use
  Company Number: None

PATIENT
  Age: 50 Year
  Sex: Female
  Weight: 72.5755 kg

DRUGS (1)
  1. CHANTIX [Suspect]
     Indication: SMOKING CESSATION THERAPY
     Dates: start: 20070501, end: 20071206

REACTIONS (5)
  - AGGRESSION [None]
  - ANGER [None]
  - MAJOR DEPRESSION [None]
  - MARITAL PROBLEM [None]
  - THREAT OF REDUNDANCY [None]
